FAERS Safety Report 12010111 (Version 4)
Quarter: 2016Q1

REPORT INFORMATION
  Report Type: Spontaneous
  Country: NL (occurrence: NL)
  Receive Date: 20160205
  Receipt Date: 20160317
  Transmission Date: 20160526
  Serious: Yes (Hospitalization)
  Sender: FDA-Public Use
  Company Number: NL-BEH-2016058505

PATIENT
  Age: 16 Year
  Sex: Male
  Weight: 74 kg

DRUGS (34)
  1. HIZENTRA [Suspect]
     Active Substance: HUMAN IMMUNOGLOBULIN G
     Indication: HYPOGAMMAGLOBULINAEMIA
     Dosage: VOLUME 2G/10ML, DOSE: 6 GRAM ONCE A WEEK CORRESPONDING TO 30ML/WEEK
     Dates: start: 20150915
  2. HIZENTRA [Suspect]
     Active Substance: HUMAN IMMUNOGLOBULIN G
     Dosage: VOLUME 4G/20ML, DOSE: 6 GRAM ONCE A WEEK CORRESPONDING TO 30ML/WEEK
     Dates: start: 20151111
  3. HIZENTRA [Suspect]
     Active Substance: HUMAN IMMUNOGLOBULIN G
     Dosage: VOLUME 4G/20ML, DOSE: 6 GRAM ONCE A WEEK CORRESPONDING TO 30ML/WEEK
     Dates: start: 20160108
  4. HIZENTRA [Suspect]
     Active Substance: HUMAN IMMUNOGLOBULIN G
     Dosage: VOLUME 4G/20ML, DOSE: 6 GRAM ONCE A WEEK CORRESPONDING TO 30ML/WEEK
     Dates: start: 20150930
  5. HIZENTRA [Suspect]
     Active Substance: HUMAN IMMUNOGLOBULIN G
     Dosage: VOLUME 2G/10ML, DOSE: 6 GRAM ONCE A WEEK CORRESPONDING TO 30ML/WEEK
     Dates: start: 20151014
  6. HIZENTRA [Suspect]
     Active Substance: HUMAN IMMUNOGLOBULIN G
     Dosage: VOLUME 4G/20ML, DOSE: 6 GRAM ONCE A WEEK CORRESPONDING TO 30ML/WEEK
     Dates: start: 20151124
  7. HIZENTRA [Suspect]
     Active Substance: HUMAN IMMUNOGLOBULIN G
     Dosage: VOLUME 4G/20ML, DOSE: 6 GRAM ONCE A WEEK CORRESPONDING TO 30ML/WEEK
     Dates: start: 20151201
  8. HIZENTRA [Suspect]
     Active Substance: HUMAN IMMUNOGLOBULIN G
     Dosage: VOLUME 4G/20ML, DOSE: 6 GRAM ONCE A WEEK CORRESPONDING TO 30ML/WEEK
     Dates: start: 20151230
  9. HIZENTRA [Suspect]
     Active Substance: HUMAN IMMUNOGLOBULIN G
     Dosage: VOLUME 2G/10ML, DOSE: 6 GRAM ONCE A WEEK CORRESPONDING TO 30ML/WEEK
     Dates: start: 20150922
  10. HIZENTRA [Suspect]
     Active Substance: HUMAN IMMUNOGLOBULIN G
     Dosage: VOLUME 2G/10ML, DOSE: 6 GRAM ONCE A WEEK CORRESPONDING TO 30ML/WEEK
     Dates: start: 20151021
  11. HIZENTRA [Suspect]
     Active Substance: HUMAN IMMUNOGLOBULIN G
     Dosage: VOLUME 4G/20ML, DOSE: 6 GRAM ONCE A WEEK CORRESPONDING TO 30ML/WEEK
     Dates: start: 20151028
  12. HIZENTRA [Suspect]
     Active Substance: HUMAN IMMUNOGLOBULIN G
     Dosage: VOLUME 2G/10ML, DOSE: 6 GRAM ONCE A WEEK CORRESPONDING TO 30ML/WEEK
     Dates: start: 20151111
  13. HIZENTRA [Suspect]
     Active Substance: HUMAN IMMUNOGLOBULIN G
     Dosage: VOLUME 2G/10ML, DOSE: 6 GRAM ONCE A WEEK CORRESPONDING TO 30ML/WEEK
     Dates: start: 20151124
  14. HIZENTRA [Suspect]
     Active Substance: HUMAN IMMUNOGLOBULIN G
     Dosage: VOLUME 2G/10ML, DOSE: 6 GRAM ONCE A WEEK CORRESPONDING TO 30ML/WEEK
     Dates: start: 20151222
  15. HIZENTRA [Suspect]
     Active Substance: HUMAN IMMUNOGLOBULIN G
     Dosage: VOLUME 2G/10ML, DOSE: 6 GRAM ONCE A WEEK CORRESPONDING TO 30ML/WEEK
     Dates: start: 20150930
  16. HIZENTRA [Suspect]
     Active Substance: HUMAN IMMUNOGLOBULIN G
     Dosage: VOLUME 2G/10ML, DOSE: 6 GRAM ONCE A WEEK CORRESPONDING TO 30ML/WEEK
     Dates: start: 20151028
  17. HIZENTRA [Suspect]
     Active Substance: HUMAN IMMUNOGLOBULIN G
     Dosage: VOLUME 4G/20ML, DOSE: 6 GRAM ONCE A WEEK CORRESPONDING TO 30ML/WEEK
     Dates: start: 20151222
  18. HIZENTRA [Suspect]
     Active Substance: HUMAN IMMUNOGLOBULIN G
     Dosage: VOLUME 4G/20ML, DOSE: 6 GRAM ONCE A WEEK CORRESPONDING TO 30ML/WEEK
     Dates: start: 20151006
  19. HIZENTRA [Suspect]
     Active Substance: HUMAN IMMUNOGLOBULIN G
     Dosage: VOLUME 4G/20ML, DOSE: 6 GRAM ONCE A WEEK CORRESPONDING TO 30ML/WEEK
     Dates: start: 20151014
  20. HIZENTRA [Suspect]
     Active Substance: HUMAN IMMUNOGLOBULIN G
     Dosage: VOLUME 2G/10ML, DOSE: 6 GRAM ONCE A WEEK CORRESPONDING TO 30ML/WEEK
     Dates: start: 20151118
  21. HIZENTRA [Suspect]
     Active Substance: HUMAN IMMUNOGLOBULIN G
     Dosage: VOLUME 2G/10ML, DOSE: 6 GRAM ONCE A WEEK CORRESPONDING TO 30ML/WEEK
     Dates: start: 20160108
  22. HIZENTRA [Suspect]
     Active Substance: HUMAN IMMUNOGLOBULIN G
     Dosage: VOLUME 4G/20ML, DOSE: 6 GRAM ONCE A WEEK CORRESPONDING TO 30ML/WEEK
     Dates: start: 20150915
  23. HIZENTRA [Suspect]
     Active Substance: HUMAN IMMUNOGLOBULIN G
     Dosage: VOLUME 4G/20ML, DOSE: 6 GRAM ONCE A WEEK CORRESPONDING TO 30ML/WEEK
     Dates: start: 20150922
  24. HIZENTRA [Suspect]
     Active Substance: HUMAN IMMUNOGLOBULIN G
     Dosage: VOLUME 2G/10ML, DOSE: 6 GRAM ONCE A WEEK CORRESPONDING TO 30ML/WEEK
     Dates: start: 20151208
  25. HIZENTRA [Suspect]
     Active Substance: HUMAN IMMUNOGLOBULIN G
     Dosage: VOLUME 2G/10ML, DOSE: 6 GRAM ONCE A WEEK CORRESPONDING TO 30ML/WEEK
     Dates: start: 20151215
  26. HIZENTRA [Suspect]
     Active Substance: HUMAN IMMUNOGLOBULIN G
     Dosage: VOLUME 4G/20ML, DOSE: 6 GRAM ONCE A WEEK CORRESPONDING TO 30ML/WEEK
     Dates: start: 20151215
  27. HIZENTRA [Suspect]
     Active Substance: HUMAN IMMUNOGLOBULIN G
     Dosage: VOLUME 4G/20ML, DOSE: 6 GRAM ONCE A WEEK CORRESPONDING TO 30ML/WEEK
     Dates: start: 20151104
  28. HIZENTRA [Suspect]
     Active Substance: HUMAN IMMUNOGLOBULIN G
     Dosage: VOLUME 4G/20ML, DOSE: 6 GRAM ONCE A WEEK CORRESPONDING TO 30ML/WEEK
     Dates: start: 20151118
  29. HIZENTRA [Suspect]
     Active Substance: HUMAN IMMUNOGLOBULIN G
     Dosage: VOLUME 4G/20ML, DOSE: 6 GRAM ONCE A WEEK CORRESPONDING TO 30ML/WEEK
     Dates: start: 20151208
  30. HIZENTRA [Suspect]
     Active Substance: HUMAN IMMUNOGLOBULIN G
     Dosage: VOLUME 2G/10ML, DOSE: 6 GRAM ONCE A WEEK CORRESPONDING TO 30ML/WEEK
     Dates: start: 20151230
  31. HIZENTRA [Suspect]
     Active Substance: HUMAN IMMUNOGLOBULIN G
     Dosage: VOLUME 2G/10ML, DOSE: 6 GRAM ONCE A WEEK CORRESPONDING TO 30ML/WEEK
     Dates: start: 20151006
  32. HIZENTRA [Suspect]
     Active Substance: HUMAN IMMUNOGLOBULIN G
     Dosage: VOLUME 4G/20ML, DOSE: 6 GRAM ONCE A WEEK CORRESPONDING TO 30ML/WEEK
     Dates: start: 20151021
  33. HIZENTRA [Suspect]
     Active Substance: HUMAN IMMUNOGLOBULIN G
     Dosage: VOLUME 2G/10ML, DOSE: 6 GRAM ONCE A WEEK CORRESPONDING TO 30ML/WEEK
     Dates: start: 20151104
  34. HIZENTRA [Suspect]
     Active Substance: HUMAN IMMUNOGLOBULIN G
     Dosage: VOLUME 2G/10ML, DOSE: 6 GRAM ONCE A WEEK CORRESPONDING TO 30ML/WEEK
     Dates: start: 20151201

REACTIONS (11)
  - Back pain [Recovering/Resolving]
  - Myalgia [Recovering/Resolving]
  - Gait disturbance [Recovering/Resolving]
  - Intervertebral discitis [Recovering/Resolving]
  - Headache [Recovering/Resolving]
  - Back pain [Recovering/Resolving]
  - Sciatica [Recovering/Resolving]
  - Muscle spasms [Recovering/Resolving]
  - Bacterial infection [Recovering/Resolving]
  - Nasopharyngitis [Recovering/Resolving]
  - Movement disorder [Recovering/Resolving]

NARRATIVE: CASE EVENT DATE: 201509
